FAERS Safety Report 8268880-X (Version None)
Quarter: 2012Q1

REPORT INFORMATION
  Report Type: 
  Country: None (occurrence: None)
  Receive Date: 20120327
  Receipt Date: 20091229
  Transmission Date: 20120608
  Serious: Yes (Other)
  Sender: FDA-Public Use
  Company Number: PHHY2009US53298

PATIENT
  Age: 69 Year
  Sex: Male
  Weight: 126 kg

DRUGS (9)
  1. OMEPRAZOLE [Concomitant]
  2. GLEEVEC [Suspect]
     Indication: CHRONIC MYELOID LEUKAEMIA
     Dosage: 400 MG DAILY, ORAL; 200 MG DAILY, ORAL
     Route: 048
     Dates: start: 20090805
  3. LIPITOR [Concomitant]
  4. METOPROLOL SUCCINATE [Concomitant]
  5. LASIX [Concomitant]
  6. FOLIC ACID [Concomitant]
  7. ISOSORBIDE MONONITRATE [Concomitant]
  8. GABAPENTIN [Concomitant]
  9. ASPIRIN [Concomitant]

REACTIONS (3)
  - MUSCLE SPASMS [None]
  - NEUROPATHY PERIPHERAL [None]
  - FLUID RETENTION [None]
